FAERS Safety Report 5700181-3 (Version None)
Quarter: 2008Q2

REPORT INFORMATION
  Report Type: 
  Country: None (occurrence: None)
  Receive Date: 20080409
  Receipt Date: 20080331
  Transmission Date: 20081010
  Serious: Yes (Hospitalization)
  Sender: FDA-Public Use
  Company Number: JP-JNJFOC-20080401049

PATIENT
  Age: 76 Year
  Sex: Female

DRUGS (6)
  1. DUROTEP [Suspect]
     Indication: CANCER PAIN
     Route: 062
  2. OXYCODONE HYDROCHLORIDE [Concomitant]
     Indication: CANCER PAIN
     Route: 048
  3. DEPAS [Concomitant]
     Indication: DEPRESSION
     Route: 048
  4. PAXIL [Concomitant]
     Indication: DEPRESSION
     Route: 048
  5. AMARYL [Concomitant]
     Indication: DIABETES MELLITUS
     Route: 048
  6. ACTOS [Concomitant]
     Indication: DIABETES MELLITUS
     Route: 048

REACTIONS (1)
  - RECTAL CANCER [None]
